FAERS Safety Report 16849851 (Version 1)
Quarter: 2019Q3

REPORT INFORMATION
  Report Type: Spontaneous
  Country: US (occurrence: US)
  Receive Date: 20190802
  Receipt Date: 20190802
  Transmission Date: 20191005
  Serious: No
  Sender: FDA-Public Use
  Company Number: None

PATIENT
  Age: 66 Year
  Sex: Male

DRUGS (10)
  1. ASPIRIN. [Concomitant]
     Active Substance: ASPIRIN
  2. CALCIUM [Concomitant]
     Active Substance: CALCIUM
  3. VITAMIN D [Concomitant]
     Active Substance: VITAMIN D NOS
  4. CARVEDILOL. [Concomitant]
     Active Substance: CARVEDILOL
  5. ALLOPURINOL. [Concomitant]
     Active Substance: ALLOPURINOL
  6. CALCIUM ACETRATE [Concomitant]
  7. SEVELAMER [Suspect]
     Active Substance: SEVELAMER
     Indication: CHRONIC KIDNEY DISEASE
     Route: 048
     Dates: start: 20140220, end: 20190109
  8. EPOETIN [Concomitant]
     Active Substance: ERYTHROPOIETIN
  9. AMLODIPINE [Concomitant]
     Active Substance: AMLODIPINE BESYLATE
  10. DRONABINOL. [Concomitant]
     Active Substance: DRONABINOL

REACTIONS (3)
  - Rectal ulcer [None]
  - Crystal deposit intestine [None]
  - Gastrointestinal ischaemia [None]

NARRATIVE: CASE EVENT DATE: 20190109
